FAERS Safety Report 14327436 (Version 9)
Quarter: 2019Q2

REPORT INFORMATION
  Report Type: Report from Study
  Country: PL (occurrence: PL)
  Receive Date: 20171227
  Receipt Date: 20190426
  Transmission Date: 20190711
  Serious: Yes (Hospitalization)
  Sender: FDA-Public Use
  Company Number: PL-ROCHE-2019979

PATIENT
  Age: 72 Year
  Sex: Female
  Weight: 80 kg

DRUGS (25)
  1. DOCETAXEL. [Suspect]
     Active Substance: DOCETAXEL
     Indication: HER-2 POSITIVE BREAST CANCER
     Route: 042
     Dates: start: 20160801
  2. PERINDOPRILUM [Concomitant]
     Indication: HYPERTENSION
     Route: 065
     Dates: start: 2005, end: 20171027
  3. BISOCARD [Concomitant]
     Active Substance: BISOPROLOL
     Dosage: DOSE REDUCED
     Route: 065
     Dates: start: 20171016
  4. BISOPROLOL [Concomitant]
     Active Substance: BISOPROLOL
     Indication: HYPERTENSION
     Route: 065
     Dates: start: 2005, end: 20171015
  5. CLEMASTINUM [CLEMASTINE] [Concomitant]
     Route: 065
     Dates: start: 20180105, end: 20180105
  6. TRASTUZUMAB. [Suspect]
     Active Substance: TRASTUZUMAB
     Indication: HER-2 POSITIVE BREAST CANCER
     Dosage: MOST RECENT DOSE PRIOR TO SERIOUS ADVERSE EVENT: 12/OCT/2017.
     Route: 058
     Dates: start: 20160801
  7. PERTUZUMAB. [Suspect]
     Active Substance: PERTUZUMAB
     Dosage: FIRST DOSE (AS PER PROTOCOL)
     Route: 042
     Dates: start: 20160801
  8. BISOCARD [Concomitant]
     Active Substance: BISOPROLOL
     Route: 065
     Dates: end: 20171015
  9. DEXAMETHASONE. [Concomitant]
     Active Substance: DEXAMETHASONE
     Route: 065
     Dates: start: 20171214, end: 20171214
  10. CLOPIDOGREL [Concomitant]
     Active Substance: CLOPIDOGREL BISULFATE
     Indication: HYPERTENSION
     Route: 065
     Dates: start: 20171027
  11. DEXAMETHASONE. [Concomitant]
     Active Substance: DEXAMETHASONE
     Indication: PREMEDICATION
     Route: 065
     Dates: start: 20171102, end: 20171102
  12. BISOPROLOL [Concomitant]
     Active Substance: BISOPROLOL
     Route: 065
     Dates: start: 20171016
  13. DEXAMETHASONE. [Concomitant]
     Active Substance: DEXAMETHASONE
     Route: 065
     Dates: start: 20180105, end: 20180105
  14. RAMIPRILUM [Concomitant]
     Indication: HYPERTENSION
     Route: 065
     Dates: start: 20171027
  15. INDAPAMIDUM [Concomitant]
     Indication: HYPERTENSION
     Route: 065
     Dates: start: 2005, end: 20171027
  16. DEXAMETHASONE. [Concomitant]
     Active Substance: DEXAMETHASONE
     Route: 065
     Dates: start: 20171123, end: 20171123
  17. PERTUZUMAB. [Suspect]
     Active Substance: PERTUZUMAB
     Indication: HER-2 POSITIVE BREAST CANCER
     Dosage: MOST RECENT DOSE PRIOR TO SERIOUS ADVERSE EVENT: 12/OCT/2017.
     Route: 042
  18. ENOXAPARINUM NATRICUM [Concomitant]
     Dosage: FOR PHLEBITIS PROPHILAXIS
     Route: 065
     Dates: start: 20160904
  19. CLEMASTINUM [CLEMASTINE] [Concomitant]
     Route: 065
     Dates: start: 20171214, end: 20171214
  20. LEVOTHYROXINUM NATRICUM [Concomitant]
     Indication: HYPOTHYROIDISM
     Route: 065
     Dates: start: 1995, end: 20171027
  21. ASPIRIN. [Concomitant]
     Active Substance: ASPIRIN
     Indication: HYPERTENSION
     Route: 065
  22. LEVOTHYROXINUM NATRICUM [Concomitant]
     Route: 065
     Dates: start: 20171027
  23. ATORVASTATINUM [Concomitant]
     Indication: HYPERTENSION
     Route: 065
     Dates: start: 20171027
  24. CLEMASTINUM [CLEMASTINE] [Concomitant]
     Indication: PREMEDICATION
     Route: 065
     Dates: start: 20171102, end: 20171102
  25. CLEMASTINUM [CLEMASTINE] [Concomitant]
     Route: 065
     Dates: start: 20171123, end: 20171123

REACTIONS (1)
  - Coronary artery disease [Not Recovered/Not Resolved]

NARRATIVE: CASE EVENT DATE: 20171014
